FAERS Safety Report 7531188-1 (Version None)
Quarter: 2011Q2

REPORT INFORMATION
  Report Type: 
  Country: None (occurrence: None)
  Receive Date: 20110608
  Receipt Date: 20110528
  Transmission Date: 20111010
  Serious: Yes (Hospitalization, Other)
  Sender: FDA-Public Use
  Company Number: JP-JNJFOC-20110412065

PATIENT
  Sex: Male

DRUGS (11)
  1. AKINETON [Concomitant]
     Indication: PARKINSONISM
     Route: 048
     Dates: start: 20100714
  2. SENNOSIDE [Concomitant]
     Indication: CONSTIPATION
     Route: 048
  3. CETILO [Concomitant]
     Indication: CONSTIPATION
     Route: 048
  4. FLUNITRAZEPAM [Concomitant]
     Indication: SCHIZOPHRENIA
     Route: 048
     Dates: start: 20100804
  5. AMLODIPINE [Concomitant]
     Indication: HYPERTENSION
     Route: 048
     Dates: start: 20081224
  6. DIOVAN [Concomitant]
     Indication: HYPERTENSION
     Route: 048
     Dates: start: 20091106
  7. LOSARTAN POTASSIUM AND HYDROCHLOROTHIAZIDE [Concomitant]
     Indication: HYPERTENSION
     Route: 048
  8. LONASEN [Concomitant]
     Indication: SCHIZOPHRENIA
     Route: 048
     Dates: start: 20100804
  9. XYZAL [Concomitant]
     Indication: SEASONAL ALLERGY
     Route: 048
     Dates: start: 20110111
  10. INVEGA [Suspect]
     Indication: SCHIZOPHRENIA
     Route: 048
     Dates: start: 20110216, end: 20110428
  11. CONTOMIN [Concomitant]
     Indication: SCHIZOPHRENIA
     Route: 048
     Dates: start: 20100414

REACTIONS (7)
  - ANGINA PECTORIS [None]
  - PALLOR [None]
  - C-REACTIVE PROTEIN INCREASED [None]
  - BLOOD GLUCOSE INCREASED [None]
  - PLEURAL EFFUSION [None]
  - BODY TEMPERATURE FLUCTUATION [None]
  - PULMONARY OEDEMA [None]
